FAERS Safety Report 25118478 (Version 4)
Quarter: 2025Q2

REPORT INFORMATION
  Report Type: Spontaneous
  Country: US (occurrence: US)
  Receive Date: 20250325
  Receipt Date: 20250425
  Transmission Date: 20250717
  Serious: No
  Sender: PFIZER
  Company Number: US-PFIZER INC-202500063348

PATIENT
  Age: 83 Year
  Sex: Female
  Weight: 44.91 kg

DRUGS (2)
  1. PAXLOVID [Suspect]
     Active Substance: NIRMATRELVIR\RITONAVIR
     Indication: COVID-19 treatment
     Dosage: [NIRMATRELVIR 300 MG]/[RITONAVIR 100 MG]; 2X/DAY
     Route: 048
     Dates: start: 20250321, end: 20250326
  2. PRIMIDONE [Suspect]
     Active Substance: PRIMIDONE
     Indication: Seizure
     Dosage: 8PM TAKES 250MG AND AT 7-7:30AM TAKES 125MG ORAL TABLET
     Route: 048

REACTIONS (7)
  - Taste disorder [Recovered/Resolved]
  - Product taste abnormal [Recovered/Resolved]
  - Thirst [Unknown]
  - Pharyngeal swelling [Recovered/Resolved]
  - Ear pain [Unknown]
  - Dysphonia [Recovered/Resolved]
  - Contraindicated product administered [Unknown]

NARRATIVE: CASE EVENT DATE: 20250301
